FAERS Safety Report 5145335-2 (Version None)
Quarter: 2006Q4

REPORT INFORMATION
  Report Type: 
  Country: None (occurrence: None)
  Receive Date: 20061101
  Receipt Date: 20061016
  Transmission Date: 20070319
  Serious: Yes (Hospitalization)
  Sender: FDA-Public Use
  Company Number: 8018995

PATIENT
  Age: 3 Year
  Sex: Female

DRUGS (2)
  1. KEPPRA [Suspect]
     Indication: EPILEPSY
     Dosage: PO
     Route: 048
  2. VALPROATE SODIUM [Concomitant]

REACTIONS (3)
  - CONDITION AGGRAVATED [None]
  - EPILEPSY [None]
  - NONSPECIFIC REACTION [None]
